FAERS Safety Report 12133555 (Version 2)
Quarter: 2016Q1

REPORT INFORMATION
  Report Type: Spontaneous
  Country: JP (occurrence: JP)
  Receive Date: 20160301
  Receipt Date: 20160323
  Transmission Date: 20160526
  Serious: Yes (Life-Threatening, Hospitalization)
  Sender: FDA-Public Use
  Company Number: JP-ELI_LILLY_AND_COMPANY-JP201602008670

PATIENT
  Age: 23 Year
  Sex: Female

DRUGS (19)
  1. ZYPREXA [Suspect]
     Active Substance: OLANZAPINE
     Indication: DISSOCIATIVE DISORDER
     Dosage: UNK
     Route: 048
     Dates: end: 201404
  2. CYMBALTA [Suspect]
     Active Substance: DULOXETINE HYDROCHLORIDE
     Indication: SOCIAL ANXIETY DISORDER
  3. CYMBALTA [Suspect]
     Active Substance: DULOXETINE HYDROCHLORIDE
     Indication: PANIC DISORDER
  4. CONTOMIN                           /00011902/ [Concomitant]
     Active Substance: CHLORPROMAZINE HYDROCHLORIDE
     Indication: DISSOCIATIVE DISORDER
     Dosage: UNK
     Route: 048
  5. CONTOMIN                           /00011902/ [Concomitant]
     Active Substance: CHLORPROMAZINE HYDROCHLORIDE
     Indication: SOCIAL ANXIETY DISORDER
  6. SILECE [Concomitant]
     Active Substance: FLUNITRAZEPAM
     Indication: PANIC DISORDER
  7. CONTOMIN                           /00011902/ [Concomitant]
     Active Substance: CHLORPROMAZINE HYDROCHLORIDE
     Indication: PANIC DISORDER
  8. CARBAMAZEPIN [Concomitant]
     Active Substance: CARBAMAZEPINE
     Indication: DISSOCIATIVE DISORDER
     Dosage: UNK
     Route: 048
  9. CARBAMAZEPIN [Concomitant]
     Active Substance: CARBAMAZEPINE
     Indication: PANIC DISORDER
  10. LEXOTAN [Concomitant]
     Active Substance: BROMAZEPAM
     Indication: SOCIAL ANXIETY DISORDER
  11. SILECE [Concomitant]
     Active Substance: FLUNITRAZEPAM
     Indication: SOCIAL ANXIETY DISORDER
  12. LEXOTAN [Concomitant]
     Active Substance: BROMAZEPAM
     Indication: PANIC DISORDER
  13. TRIAZOLAM. [Concomitant]
     Active Substance: TRIAZOLAM
     Indication: PRODUCT USED FOR UNKNOWN INDICATION
     Dosage: UNK
     Route: 065
  14. CYMBALTA [Suspect]
     Active Substance: DULOXETINE HYDROCHLORIDE
     Indication: DISSOCIATIVE DISORDER
     Dosage: UNK
     Route: 048
  15. CARBAMAZEPIN [Concomitant]
     Active Substance: CARBAMAZEPINE
     Indication: SOCIAL ANXIETY DISORDER
  16. SILECE [Concomitant]
     Active Substance: FLUNITRAZEPAM
     Indication: DISSOCIATIVE DISORDER
     Dosage: UNK
     Route: 048
  17. ZYPREXA [Suspect]
     Active Substance: OLANZAPINE
     Indication: SOCIAL ANXIETY DISORDER
     Dosage: 10 MG, QD
     Route: 048
     Dates: start: 201404
  18. ZYPREXA [Suspect]
     Active Substance: OLANZAPINE
     Indication: PANIC DISORDER
  19. LEXOTAN [Concomitant]
     Active Substance: BROMAZEPAM
     Indication: DISSOCIATIVE DISORDER
     Dosage: UNK
     Route: 048

REACTIONS (10)
  - Off label use [Not Recovered/Not Resolved]
  - Fear [Recovered/Resolved]
  - Affect lability [Recovered/Resolved]
  - Diabetic hyperglycaemic coma [Recovered/Resolved]
  - Increased appetite [Unknown]
  - Weight increased [Unknown]
  - Off label use [Recovered/Resolved]
  - Dissociative amnesia [Recovered/Resolved]
  - Diabetes mellitus [Not Recovered/Not Resolved]
  - Decreased appetite [Recovered/Resolved]

NARRATIVE: CASE EVENT DATE: 201405
